FAERS Safety Report 10452609 (Version 1)
Quarter: 2014Q3

REPORT INFORMATION
  Report Type: Spontaneous
  Country: GB (occurrence: GB)
  Receive Date: 20140915
  Receipt Date: 20140915
  Transmission Date: 20150326
  Serious: Yes (Death)
  Sender: FDA-Public Use
  Company Number: GB-TEVA-508382ISR

PATIENT
  Age: 65 Year
  Sex: Male

DRUGS (3)
  1. CHLORAMBUCIL [Concomitant]
     Active Substance: CHLORAMBUCIL
     Indication: CHRONIC LYMPHOCYTIC LEUKAEMIA
     Dosage: 3 CYCLES
     Route: 065
     Dates: start: 2007
  2. CYCLOPHOSPHAMIDE. [Suspect]
     Active Substance: CYCLOPHOSPHAMIDE
     Indication: CHRONIC LYMPHOCYTIC LEUKAEMIA
     Dosage: 4 CYCLES IN 2007, 1 CYCLE IN 2009, 2 CYCLES 2011
     Route: 065
     Dates: start: 2007, end: 2011
  3. FLUDARABINE [Suspect]
     Active Substance: FLUDARABINE PHOSPHATE
     Indication: CHRONIC LYMPHOCYTIC LEUKAEMIA
     Dosage: 4 CYCLES IN 2007, 1 CYCLE IN 2009, 2 CYCLES 2011
     Route: 065
     Dates: start: 2007, end: 2011

REACTIONS (1)
  - Histiocytosis haematophagic [Fatal]
